FAERS Safety Report 18918063 (Version 1)
Quarter: 2021Q1

REPORT INFORMATION
  Report Type: Spontaneous
  Country: CO (occurrence: CO)
  Receive Date: 20210220
  Receipt Date: 20210220
  Transmission Date: 20210420
  Serious: Yes (Other)
  Sender: FDA-Public Use
  Company Number: CO-AMGEN-COLSP2021020616

PATIENT
  Age: 56 Year
  Sex: Female

DRUGS (1)
  1. BLINCYTO [Suspect]
     Active Substance: BLINATUMOMAB
     Indication: CHRONIC LYMPHOCYTIC LEUKAEMIA REFRACTORY
     Dosage: UNK
     Route: 065
     Dates: start: 20210127, end: 20210212

REACTIONS (4)
  - Bradycardia [Unknown]
  - Tonic posturing [Unknown]
  - Muscle spasms [Unknown]
  - Disorientation [Unknown]

NARRATIVE: CASE EVENT DATE: 202101
